FAERS Safety Report 7674900-3 (Version None)
Quarter: 2011Q3

REPORT INFORMATION
  Report Type: 
  Country: None (occurrence: None)
  Receive Date: 20110810
  Receipt Date: 20110728
  Transmission Date: 20111222
  Serious: Yes (Other)
  Sender: FDA-Public Use
  Company Number: CA-ELI_LILLY_AND_COMPANY-CA201107007586

PATIENT
  Sex: Female

DRUGS (7)
  1. ZYPREXA [Suspect]
     Dosage: 5 MG, EACH EVENING
  2. ZYPREXA [Suspect]
     Dosage: 10 MG, EACH EVENING
  3. ZYPREXA [Suspect]
     Indication: BIPOLAR DISORDER
     Dosage: 2.5 MG, QD
  4. ZYPREXA ZYDIS [Suspect]
     Dosage: 10 MG, EACH EVENING
  5. ZYPREXA [Suspect]
     Dosage: 15 MG, EACH EVENING
  6. ZYPREXA [Suspect]
     Dosage: 20 MG, EACH EVENING
  7. ZYPREXA ZYDIS [Suspect]
     Indication: BIPOLAR DISORDER
     Dosage: 5 MG, EACH EVENING

REACTIONS (2)
  - WEIGHT INCREASED [None]
  - DIABETES MELLITUS [None]
